FAERS Safety Report 5281907-2 (Version None)
Quarter: 2007Q1

REPORT INFORMATION
  Report Type: 
  Country: None (occurrence: None)
  Receive Date: 20070330
  Receipt Date: 20070326
  Transmission Date: 20070707
  Serious: Yes (Hospitalization)
  Sender: FDA-Public Use
  Company Number: FI-ELI_LILLY_AND_COMPANY-FI200703005311

PATIENT
  Age: 56 Year
  Sex: Male

DRUGS (6)
  1. ZYPREXA [Suspect]
     Indication: DELUSIONAL DISORDER, UNSPECIFIED TYPE
     Dosage: 10 MG, DAILY (1/D)
     Route: 048
     Dates: start: 20060901
  2. ENBREL [Concomitant]
     Indication: PSORIATIC ARTHROPATHY
     Dosage: 25 MG,ONLY ONE DOSE
     Route: 058
     Dates: start: 20070112, end: 20070116
  3. REMICADE [Concomitant]
     Indication: PSORIATIC ARTHROPATHY
     Dosage: 300 MG, OTHER
     Dates: start: 20060201, end: 20061101
  4. CIPRALEX [Concomitant]
     Dosage: 20 MG, DAILY (1/D)
  5. TREXAN [Concomitant]
     Dosage: 15 MG, WEEKLY (1/W)
  6. FOLIC ACID [Concomitant]
     Dosage: 5 MG, WEEKLY (1/W)

REACTIONS (4)
  - ABDOMINAL PAIN UPPER [None]
  - C-REACTIVE PROTEIN INCREASED [None]
  - PULMONARY EMBOLISM [None]
  - VENOUS THROMBOSIS [None]
